FAERS Safety Report 4285922-7 (Version None)
Quarter: 2004Q1

REPORT INFORMATION
  Report Type: 
  Country: None (occurrence: None)
  Receive Date: 20040205
  Receipt Date: 20040123
  Transmission Date: 20041129
  Serious: Yes (Hospitalization)
  Sender: FDA-Public Use
  Company Number: CH-GLAXOSMITHKLINE-B0320953A

PATIENT
  Age: 71 Year
  Sex: Female

DRUGS (8)
  1. DEROXAT [Suspect]
     Indication: DEPRESSION
     Dosage: 20MG PER DAY
     Route: 048
     Dates: start: 20031119
  2. ESOMEPRAZOLE [Concomitant]
     Dosage: 20MG PER DAY
     Route: 048
     Dates: start: 20031120
  3. ATENOLOLUM [Concomitant]
     Indication: HYPERTENSION
     Dosage: 100MG TWICE PER DAY
     Route: 048
     Dates: start: 20031114
  4. NATEGLINIDE [Concomitant]
     Indication: DIABETES MELLITUS NON-INSULIN-DEPENDENT
     Dosage: 120MG TWICE PER DAY
     Route: 048
  5. DOXEPIN [Concomitant]
     Dosage: 25MG TWICE PER DAY
     Route: 048
     Dates: start: 19920101, end: 20031124
  6. ALPRAZOLAM [Concomitant]
     Dosage: .5MG TWICE PER DAY
     Route: 048
  7. AMLODIPINE BESYLATE [Concomitant]
     Indication: HYPERTENSION
     Dosage: 5MG PER DAY
     Route: 048
     Dates: start: 20031117, end: 20031120
  8. LOSARTAN [Concomitant]
     Dosage: 50MG PER DAY
     Route: 048
     Dates: start: 20031114, end: 20031120

REACTIONS (6)
  - ABDOMINAL PAIN [None]
  - BLOOD PRESSURE FLUCTUATION [None]
  - BOWEL SOUNDS ABNORMAL [None]
  - CONSTIPATION [None]
  - FAECALOMA [None]
  - ILL-DEFINED DISORDER [None]
